FAERS Safety Report 6843447-6 (Version None)
Quarter: 2010Q3

REPORT INFORMATION
  Report Type: 
  Country: None (occurrence: None)
  Receive Date: 20100715
  Receipt Date: 20100706
  Transmission Date: 20110219
  Serious: No
  Sender: FDA-Public Use
  Company Number: IT-ASTRAZENECA-2010SE29821

PATIENT
  Age: 24241 Day
  Sex: Male

DRUGS (2)
  1. CRESTOR [Suspect]
     Indication: HYPERCHOLESTEROLAEMIA
     Route: 048
     Dates: start: 20100217, end: 20100217
  2. ASPIRIN [Concomitant]
     Dates: start: 20040706

REACTIONS (2)
  - RASH GENERALISED [None]
  - RESPIRATORY FAILURE [None]
